FAERS Safety Report 21329485 (Version 1)
Quarter: 2022Q3

REPORT INFORMATION
  Report Type: Spontaneous
  Country: US (occurrence: US)
  Receive Date: 20220913
  Receipt Date: 20220913
  Transmission Date: 20221027
  Serious: No
  Sender: FDA-Public Use
  Company Number: US-EIGER BIOPHARMACEUTICALS-EIG-2022-000009

PATIENT
  Sex: Female

DRUGS (1)
  1. ZOKINVY [Suspect]
     Active Substance: LONAFARNIB
     Indication: Progeria
     Dosage: 1 TABLET 2 TIMES A DAY
     Route: 065

REACTIONS (1)
  - Product dose omission issue [Unknown]
